FAERS Safety Report 8174204-9 (Version None)
Quarter: 2012Q1

REPORT INFORMATION
  Report Type: 
  Country: None (occurrence: None)
  Receive Date: 20120227
  Receipt Date: 20120217
  Transmission Date: 20120608
  Serious: Yes (Hospitalization)
  Sender: FDA-Public Use
  Company Number: DKLU1077002

PATIENT
  Age: 24 Month
  Sex: Male

DRUGS (1)
  1. SABRIL [Suspect]
     Indication: INFANTILE SPASMS
     Dosage: 2.5 ML MILLILITRE(S), 2 IN 1 D, ORAL
     Route: 048

REACTIONS (5)
  - VOMITING [None]
  - EAR INFECTION [None]
  - FEEDING DISORDER OF INFANCY OR EARLY CHILDHOOD [None]
  - CHILD MALTREATMENT SYNDROME [None]
  - URINARY TRACT INFECTION [None]
